FAERS Safety Report 9442167 (Version 1)
Quarter: 2013Q3

REPORT INFORMATION
  Report Type: Spontaneous
  Country: TR (occurrence: TR)
  Receive Date: 20130806
  Receipt Date: 20130806
  Transmission Date: 20140515
  Serious: Yes (Other)
  Sender: FDA-Public Use
  Company Number: TR-ROCHE-1257197

PATIENT
  Age: 78 Year
  Sex: Female

DRUGS (2)
  1. BONDRONAT [Suspect]
     Indication: METASTASES TO BONE
     Route: 065
  2. FOSAMAX [Concomitant]

REACTIONS (2)
  - Stomatitis necrotising [Unknown]
  - Tooth loss [Unknown]
